FAERS Safety Report 16506301 (Version 2)
Quarter: 2019Q3

REPORT INFORMATION
  Report Type: Report from Study
  Country: US (occurrence: US)
  Receive Date: 20190701
  Receipt Date: 20190930
  Transmission Date: 20191004
  Serious: No
  Sender: FDA-Public Use
  Company Number: US-CLOVIS ONCOLOGY-CLO-2019-000730

PATIENT
  Age: 68 Year
  Sex: Female

DRUGS (5)
  1. RUBRACA [Suspect]
     Active Substance: RUCAPARIB CAMSYLATE
     Dosage: 300 MG AM / 600 MG PM
     Route: 048
     Dates: start: 20190419, end: 20190627
  2. RUBRACA [Suspect]
     Active Substance: RUCAPARIB CAMSYLATE
     Dosage: 300 MG, BID
     Dates: start: 20190409
  3. RUBRACA [Suspect]
     Active Substance: RUCAPARIB CAMSYLATE
     Dosage: 300 MG AM / 600 MG PM
     Route: 048
     Dates: start: 20190429, end: 2019
  4. RUBRACA [Suspect]
     Active Substance: RUCAPARIB CAMSYLATE
     Indication: OVARIAN CANCER
     Dosage: 600 MG, BID
     Route: 048
     Dates: start: 20190410, end: 20190419
  5. RUBRACA [Suspect]
     Active Substance: RUCAPARIB CAMSYLATE
     Dosage: 300 MG AM / 600 MG PM
     Route: 048
     Dates: start: 20190711

REACTIONS (24)
  - Abdominal distension [Unknown]
  - Hypoglycaemia [Unknown]
  - Chest discomfort [Unknown]
  - Taste disorder [Not Recovered/Not Resolved]
  - Dysphonia [Not Recovered/Not Resolved]
  - Malaise [Unknown]
  - Peripheral swelling [Unknown]
  - Fatigue [Not Recovered/Not Resolved]
  - Dyspnoea [Not Recovered/Not Resolved]
  - Dysgeusia [Not Recovered/Not Resolved]
  - Hepatic enzyme increased [Unknown]
  - Adverse event [Unknown]
  - Respiratory tract infection [Recovering/Resolving]
  - Ageusia [Unknown]
  - Chills [Unknown]
  - Night sweats [Recovered/Resolved]
  - Sputum discoloured [Not Recovered/Not Resolved]
  - Nausea [Not Recovered/Not Resolved]
  - Stress [Unknown]
  - Appetite disorder [Unknown]
  - Carbohydrate antigen 125 increased [Unknown]
  - Productive cough [Not Recovered/Not Resolved]
  - Joint swelling [Unknown]
  - Alopecia [Unknown]

NARRATIVE: CASE EVENT DATE: 2019
